FAERS Safety Report 10120922 (Version 1)
Quarter: 2014Q2

REPORT INFORMATION
  Report Type: Spontaneous
  Country: US (occurrence: US)
  Receive Date: 20140425
  Receipt Date: 20140425
  Transmission Date: 20141212
  Serious: No
  Sender: FDA-Public Use
  Company Number: US-ASTRAZENECA-2013SE46502

PATIENT
  Sex: Male

DRUGS (8)
  1. PRILOSEC OTC [Suspect]
     Indication: GASTROOESOPHAGEAL REFLUX DISEASE
     Route: 048
  2. MYCOPHENOLATE [Concomitant]
     Route: 048
  3. PREDNISONE [Concomitant]
  4. AMLODIPINE BESYLATE [Concomitant]
  5. CLONIDINE [Concomitant]
  6. TACROLIMUS [Concomitant]
  7. MULTIVITAMIN [Concomitant]
  8. BAYER ASPIRIN [Concomitant]
     Route: 048

REACTIONS (3)
  - Pain [Unknown]
  - Incorrect drug administration duration [Unknown]
  - Drug ineffective for unapproved indication [Unknown]
